FAERS Safety Report 5682348-6 (Version None)
Quarter: 2008Q1

REPORT INFORMATION
  Report Type: 
  Country: None (occurrence: None)
  Receive Date: 20080327
  Receipt Date: 20080319
  Transmission Date: 20080703
  Serious: Yes (Death)
  Sender: FDA-Public Use
  Company Number: JP-JNJFOC-20080301645

PATIENT
  Age: 68 Year
  Sex: Male

DRUGS (14)
  1. RISPERDAL [Suspect]
     Indication: IMPULSIVE BEHAVIOUR
     Route: 048
  2. DOPAMINE HYDROCHLORIDE [Concomitant]
     Route: 050
  3. GASTROM [Concomitant]
     Route: 048
  4. ARTIST [Concomitant]
     Route: 048
  5. ASPIRIN [Concomitant]
     Route: 048
  6. MYSLEE [Concomitant]
     Route: 048
  7. DOBUTREX [Concomitant]
     Route: 050
  8. KIDMIN [Concomitant]
     Route: 050
  9. FAMOTIDINE [Concomitant]
     Route: 050
  10. ASPARA K [Concomitant]
     Route: 050
  11. MULTI-VITAMIN [Concomitant]
     Indication: PARENTERAL NUTRITION
     Route: 050
  12. EPOGIN [Concomitant]
     Route: 050
  13. DEPAKENE [Concomitant]
  14. PHENOBAL [Concomitant]

REACTIONS (2)
  - CONVULSION [None]
  - RENAL FAILURE [None]
